FAERS Safety Report 5407864-3 (Version None)
Quarter: 2007Q3

REPORT INFORMATION
  Report Type: 
  Country: None (occurrence: None)
  Receive Date: 20070803
  Receipt Date: 20070718
  Transmission Date: 20080115
  Serious: Yes (Other)
  Sender: FDA-Public Use
  Company Number: 5255 / 2007S1006205

PATIENT
  Age: 17 Year
  Sex: Female

DRUGS (3)
  1. AMNESTEEM [Suspect]
     Indication: ACNE
     Dosage: 40 MG, BID ON EVEN DAYS, 40 MG ON ODD DAYS
     Dates: start: 20070217, end: 20070606
  2. AMNESTEEM [Suspect]
     Indication: ACNE
     Dosage: 40 MG, BID ON EVEN DAYS, 40 MG ON ODD DAYS
     Dates: start: 20070217, end: 20070606
  3. BIRTH CONTROL PILLS [Concomitant]

REACTIONS (3)
  - DRUG DOSE OMISSION [None]
  - PREGNANCY ON ORAL CONTRACEPTIVE [None]
  - TREATMENT NONCOMPLIANCE [None]
